FAERS Safety Report 6265782-5 (Version None)
Quarter: 2009Q3

REPORT INFORMATION
  Report Type: 
  Country: None (occurrence: None)
  Receive Date: 20090709
  Receipt Date: 20090709
  Transmission Date: 20100115
  Serious: Yes (Other)
  Sender: FDA-Public Use
  Company Number: None

PATIENT
  Age: 40 Year
  Sex: Male
  Weight: 95.2554 kg

DRUGS (1)
  1. AVELOX [Suspect]
     Indication: BRONCHITIS
     Dosage: 1 PILL DAILY PO FIVE DAYS RX
     Route: 048
     Dates: start: 20090707, end: 20090708

REACTIONS (2)
  - ANXIETY [None]
  - CONFUSIONAL STATE [None]
